FAERS Safety Report 4496695-7 (Version None)
Quarter: 2004Q4

REPORT INFORMATION
  Report Type: 
  Country: None (occurrence: None)
  Receive Date: 20041109
  Receipt Date: 20041102
  Transmission Date: 20050328
  Serious: Yes (Other)
  Sender: FDA-Public Use
  Company Number: PHBS2004BE14710

PATIENT
  Age: 17 Year
  Sex: Female

DRUGS (1)
  1. LAMISIL [Suspect]
     Indication: NAIL TINEA
     Dosage: 250 MG/DAY
     Route: 048
     Dates: start: 20041021, end: 20041028

REACTIONS (5)
  - ARTHRITIS [None]
  - ARTHROPATHY [None]
  - ERYTHEMA [None]
  - JOINT EFFUSION [None]
  - JOINT SWELLING [None]
